FAERS Safety Report 5910673-X (Version None)
Quarter: 2008Q4

REPORT INFORMATION
  Report Type: 
  Country: None (occurrence: None)
  Receive Date: 20081007
  Receipt Date: 20080926
  Transmission Date: 20090506
  Serious: Yes (Other)
  Sender: FDA-Public Use
  Company Number: US-ROCHE-547302

PATIENT
  Age: 52 Year
  Sex: Female

DRUGS (5)
  1. VALIUM [Suspect]
     Indication: DRUG USE FOR UNKNOWN INDICATION
     Route: 065
  2. LORCET-HD [Concomitant]
     Indication: PAIN
  3. UNSPECIFIED DRUG [Concomitant]
     Dosage: DRUG REPORTED AS: HERBS.
  4. ANTIDEPRESSANTS [Concomitant]
  5. UNSPECIFIED MEDICATIONS [Concomitant]
     Dosage: DRUG REPORTED AS: MULTIPLE MEDICATIONS.

REACTIONS (3)
  - ANXIETY [None]
  - SUICIDAL IDEATION [None]
  - TOOTH EXTRACTION [None]
